FAERS Safety Report 5128405-4 (Version None)
Quarter: 2006Q4

REPORT INFORMATION
  Report Type: 
  Country: None (occurrence: None)
  Receive Date: 20061011
  Receipt Date: 20061004
  Transmission Date: 20070319
  Serious: Yes (Other)
  Sender: FDA-Public Use
  Company Number: S06-USA-04078-01

PATIENT
  Age: 81 Year
  Sex: Female

DRUGS (5)
  1. THYROID TAB [Suspect]
     Indication: THYROID THERAPY
     Dosage: 90 MG QD PO
     Route: 048
     Dates: start: 19760101, end: 20061004
  2. ATENOLOL [Concomitant]
  3. ATACAND [Concomitant]
  4. FLOVENT [Concomitant]
  5. NASACORT [Concomitant]

REACTIONS (6)
  - ASTHENIA [None]
  - CONDITION AGGRAVATED [None]
  - EPINEPHRINE INCREASED [None]
  - HYPERTENSION [None]
  - THYROID GLAND SCAN ABNORMAL [None]
  - TREMOR [None]
